FAERS Safety Report 21060226 (Version 2)
Quarter: 2022Q3

REPORT INFORMATION
  Report Type: Report from Study
  Country: US (occurrence: US)
  Receive Date: 20220708
  Receipt Date: 20220911
  Transmission Date: 20221026
  Serious: No
  Sender: FDA-Public Use
  Company Number: US-SA-SAC20220704001341

PATIENT
  Age: 55 Year
  Sex: Female
  Weight: 77.098 kg

DRUGS (9)
  1. AUBAGIO [Suspect]
     Active Substance: TERIFLUNOMIDE
     Indication: Multiple sclerosis
     Dosage: 14 MG, QD
     Route: 048
     Dates: start: 20220307
  2. CORTISONE [Concomitant]
     Active Substance: CORTISONE
  3. CYCLOBENZAPRINE HYDROCHLORIDE [Concomitant]
     Active Substance: CYCLOBENZAPRINE HYDROCHLORIDE
  4. PREGABALIN [Concomitant]
     Active Substance: PREGABALIN
  5. BACLOFEN [Concomitant]
     Active Substance: BACLOFEN
     Indication: Multiple sclerosis
  6. CITALOPRAM [Concomitant]
     Active Substance: CITALOPRAM HYDROBROMIDE
  7. TOPAMAX [Concomitant]
     Active Substance: TOPIRAMATE
  8. VITAMINS NOS [Concomitant]
     Active Substance: VITAMINS
     Indication: Multiple sclerosis
  9. VITAMIN B12 [Concomitant]
     Active Substance: CYANOCOBALAMIN

REACTIONS (5)
  - Gastritis [Unknown]
  - Lower respiratory tract infection [Unknown]
  - Diarrhoea [Recovered/Resolved]
  - Hip surgery [Unknown]
  - Blood pressure abnormal [Recovering/Resolving]

NARRATIVE: CASE EVENT DATE: 20220826
